FAERS Safety Report 13127820 (Version 1)
Quarter: 2017Q1

REPORT INFORMATION
  Report Type: Spontaneous
  Country: US (occurrence: US)
  Receive Date: 20170118
  Receipt Date: 20170118
  Transmission Date: 20170428
  Serious: No
  Sender: FDA-Public Use
  Company Number: US-ETHYPHARM USA CORP-EY-BPN-US-2016-020

PATIENT
  Age: 33 Year
  Sex: Male

DRUGS (2)
  1. BUPRENORPHINE AND NALOXONE [Suspect]
     Active Substance: BUPRENORPHINE\NALOXONE
  2. NO DRUG NAME [Concomitant]

REACTIONS (3)
  - Product substitution issue [None]
  - Vomiting [Unknown]
  - Nausea [Unknown]
